FAERS Safety Report 14850382 (Version 1)
Quarter: 2018Q2

REPORT INFORMATION
  Report Type: Spontaneous
  Country: IT (occurrence: IT)
  Receive Date: 20180505
  Receipt Date: 20180505
  Transmission Date: 20180711
  Serious: Yes (Other)
  Sender: FDA-Public Use
  Company Number: IT-AUROBINDO-AUR-APL-2018-023760

PATIENT
  Age: 77 Year
  Sex: Male

DRUGS (1)
  1. CIPROFLOXACIN FILM-COATED TABLETS [Suspect]
     Active Substance: CIPROFLOXACIN
     Indication: EAR PAIN
     Route: 048
     Dates: start: 20180329, end: 20180330

REACTIONS (7)
  - Otorrhoea [Recovering/Resolving]
  - Malaise [Recovering/Resolving]
  - Ear pain [Recovering/Resolving]
  - Nausea [Recovering/Resolving]
  - Urticaria [Recovering/Resolving]
  - Pruritus [Recovering/Resolving]
  - Hyperhidrosis [Recovering/Resolving]

NARRATIVE: CASE EVENT DATE: 20180330
